FAERS Safety Report 4900008-3 (Version None)
Quarter: 2006Q1

REPORT INFORMATION
  Report Type: 
  Country: None (occurrence: None)
  Receive Date: 20060201
  Receipt Date: 20060121
  Transmission Date: 20060701
  Serious: Yes (Other)
  Sender: FDA-Public Use
  Company Number: 2005169152

PATIENT
  Age: 52 Year
  Sex: Male
  Weight: 90.7194 kg

DRUGS (2)
  1. LIPITOR [Suspect]
     Indication: BLOOD CHOLESTEROL
     Dosage: 20 MG
     Dates: end: 19960101
  2. ANTIBIOTICS (ANTIBIOTICS) [Concomitant]

REACTIONS (3)
  - DIALYSIS [None]
  - RENAL CELL CARCINOMA STAGE UNSPECIFIED [None]
  - RENAL TRANSPLANT [None]
